FAERS Safety Report 17186646 (Version 1)
Quarter: 2019Q4

REPORT INFORMATION
  Report Type: Spontaneous
  Country: FR (occurrence: FR)
  Receive Date: 20191220
  Receipt Date: 20191220
  Transmission Date: 20200122
  Serious: Yes (Other)
  Sender: FDA-Public Use
  Company Number: FR-HARMONY BIOSCIENCES-2019HMY00091

PATIENT
  Age: 12 Year
  Sex: Male

DRUGS (1)
  1. WAKIX [Suspect]
     Active Substance: PITOLISANT HYDROCHLORIDE
     Indication: NARCOLEPSY
     Dosage: 4.5 MG, 1X/DAY
     Route: 065
     Dates: start: 201911, end: 201911

REACTIONS (2)
  - Behaviour disorder [Recovered/Resolved]
  - Aggression [Unknown]

NARRATIVE: CASE EVENT DATE: 201911
